FAERS Safety Report 25189095 (Version 1)
Quarter: 2025Q2

REPORT INFORMATION
  Report Type: Spontaneous
  Country: US (occurrence: US)
  Receive Date: 20250411
  Receipt Date: 20250411
  Transmission Date: 20250717
  Serious: No
  Sender: MARKSANS
  Company Number: US-MARKSANS PHARMA LIMITED-MPL202500024

PATIENT

DRUGS (1)
  1. GUAIFENESIN [Suspect]
     Active Substance: GUAIFENESIN
     Indication: Secretion discharge
     Route: 048

REACTIONS (1)
  - Drug ineffective [Unknown]
